FAERS Safety Report 6409273-7 (Version None)
Quarter: 2009Q4

REPORT INFORMATION
  Report Type: 
  Country: None (occurrence: None)
  Receive Date: 20091019
  Receipt Date: 20091019
  Transmission Date: 20100525
  Serious: No
  Sender: FDA-Public Use
  Company Number: None

PATIENT
  Sex: Male
  Weight: 79.3795 kg

DRUGS (1)
  1. ZICAM NASAL GEL AND ORAL MIST [Suspect]
     Indication: NASOPHARYNGITIS
     Dates: start: 20020101, end: 20081201

REACTIONS (14)
  - ANKLE FRACTURE [None]
  - ANOSMIA [None]
  - DIZZINESS [None]
  - FALL [None]
  - HYPOAESTHESIA [None]
  - HYPOAESTHESIA FACIAL [None]
  - HYPOAESTHESIA ORAL [None]
  - HYPOGEUSIA [None]
  - MULTIPLE INJURIES [None]
  - MULTIPLE SCLEROSIS [None]
  - NERVOUS SYSTEM DISORDER [None]
  - PARAESTHESIA [None]
  - PARAESTHESIA ORAL [None]
  - SYNCOPE [None]
